FAERS Safety Report 6450702-0 (Version None)
Quarter: 2009Q4

REPORT INFORMATION
  Report Type: 
  Country: None (occurrence: None)
  Receive Date: 20091123
  Receipt Date: 20091116
  Transmission Date: 20100525
  Serious: No
  Sender: FDA-Public Use
  Company Number: US-ROCHE-668322

PATIENT
  Sex: Female

DRUGS (1)
  1. ISOTRETINOIN [Suspect]
     Indication: SEBACEOUS GLANDS OVERACTIVITY
     Dosage: THE PATIENT WAS DISPENSED ISOTRETINOIN (CLARAVIS) 10 MG CAPSULE ON 06 OCTOBER 2009.
     Route: 048

REACTIONS (2)
  - NO ADVERSE EVENT [None]
  - PREGNANCY [None]
